FAERS Safety Report 4505743-7 (Version None)
Quarter: 2004Q4

REPORT INFORMATION
  Report Type: 
  Country: None (occurrence: None)
  Receive Date: 20041025
  Receipt Date: 20040309
  Transmission Date: 20050328
  Serious: Yes (Life-Threatening, Hospitalization, Other)
  Sender: FDA-Public Use
  Company Number: US-JNJFOC-20040103802

PATIENT
  Age: 38 Year
  Sex: Male
  Weight: 78.2 kg

DRUGS (12)
  1. REMICADE [Suspect]
     Indication: CROHN'S DISEASE
     Dosage: 400 MG; INTRAVENOUS (SEE IMAGE)
     Route: 042
     Dates: start: 20020318
  2. REMICADE [Suspect]
     Indication: CROHN'S DISEASE
     Dosage: 400 MG; INTRAVENOUS (SEE IMAGE)
     Route: 042
     Dates: start: 20030602
  3. REMICADE [Suspect]
     Indication: CROHN'S DISEASE
     Dosage: 400 MG; INTRAVENOUS (SEE IMAGE)
     Route: 042
     Dates: start: 20030925
  4. REMICADE [Suspect]
     Indication: CROHN'S DISEASE
     Dosage: 400 MG; INTRAVENOUS (SEE IMAGE)
     Route: 042
     Dates: start: 20031119
  5. MERCAPTOPURINE [Concomitant]
  6. ACIPHEX [Concomitant]
  7. LISINOPRIL [Concomitant]
  8. TRAMADOL [Concomitant]
  9. VENLAFAXINE HCL [Concomitant]
  10. TRAZODONE HCL [Concomitant]
  11. PREDNISONE [Concomitant]
  12. MERCAPTOPURINE [Concomitant]

REACTIONS (1)
  - HISTOPLASMOSIS [None]
